FAERS Safety Report 9712649 (Version 2)
Quarter: 2013Q4

REPORT INFORMATION
  Report Type: Spontaneous
  Country: TT (occurrence: TT)
  Receive Date: 20131126
  Receipt Date: 20131126
  Transmission Date: 20140711
  Serious: Yes (Life-Threatening, Hospitalization)
  Sender: FDA-Public Use
  Company Number: PHHY2013TT108485

PATIENT
  Age: 12 Year
  Sex: Female

DRUGS (3)
  1. NEORAL [Suspect]
     Dosage: 1 DF, BID
     Dates: start: 20130923
  2. NEORAL [Suspect]
     Dates: start: 20130926
  3. TYLENOL [Concomitant]

REACTIONS (11)
  - Apparent death [Unknown]
  - Abdominal pain [Not Recovered/Not Resolved]
  - Vulvovaginal pain [Recovered/Resolved]
  - Vulvovaginal burning sensation [Recovered/Resolved]
  - Urethral spasm [Recovered/Resolved]
  - Palpitations [Unknown]
  - Burning sensation [Unknown]
  - Expired drug administered [Unknown]
  - Paraesthesia [Unknown]
  - Abdominal pain upper [Unknown]
  - Nausea [Recovering/Resolving]
